FAERS Safety Report 18909387 (Version 1)
Quarter: 2021Q1

REPORT INFORMATION
  Report Type: Spontaneous
  Country: US (occurrence: US)
  Receive Date: 20210218
  Receipt Date: 20210218
  Transmission Date: 20210420
  Serious: Yes (Hospitalization)
  Sender: FDA-Public Use
  Company Number: None

PATIENT
  Age: 30 Year
  Sex: Male

DRUGS (4)
  1. CEFAZOLIN [Suspect]
     Active Substance: CEFAZOLIN
     Indication: PREOPERATIVE CARE
     Dosage: ?          OTHER FREQUENCY:PRIOR TO SURGERY;?
     Route: 042
     Dates: start: 20210217, end: 20210217
  2. LIDOCAINE. [Concomitant]
     Active Substance: LIDOCAINE
     Dates: start: 20210217, end: 20210217
  3. SUCCINYLCHOLINE [Suspect]
     Active Substance: SUCCINYLCHOLINE
     Dates: start: 20210217, end: 20210217
  4. MIDAZOLAM. [Concomitant]
     Active Substance: MIDAZOLAM
     Dates: start: 20210217, end: 20210217

REACTIONS (3)
  - Anaphylactic reaction [None]
  - Vomiting [None]
  - Hypotension [None]

NARRATIVE: CASE EVENT DATE: 20210217
